FAERS Safety Report 21247295 (Version 3)
Quarter: 2022Q4

REPORT INFORMATION
  Report Type: Report from Study
  Country: US (occurrence: US)
  Receive Date: 20220824
  Receipt Date: 20221018
  Transmission Date: 20230113
  Serious: Yes (Life-Threatening, Hospitalization, Disabling, Other)
  Sender: FDA-Public Use
  Company Number: US-NOVARTISPH-NVSC2022US188572

PATIENT
  Sex: Male
  Weight: 104 kg

DRUGS (9)
  1. ENTRESTO [Suspect]
     Active Substance: SACUBITRIL\VALSARTAN
     Indication: Cardiac failure chronic
     Dosage: 1 DOSAGE FORM, BID
     Route: 048
     Dates: start: 20210701, end: 20220307
  2. ENTRESTO [Suspect]
     Active Substance: SACUBITRIL\VALSARTAN
     Dosage: 0.5 DOSAGE FORM, BID (HALF  TAB)
     Route: 048
  3. ENTRESTO [Suspect]
     Active Substance: SACUBITRIL\VALSARTAN
     Dosage: 0.5 DOSAGE FORM, BID (DOSE DECREASED 01 MAR 2022)
     Route: 048
     Dates: start: 20220307
  4. TORSEMIDE [Concomitant]
     Active Substance: TORSEMIDE
     Indication: Product used for unknown indication
     Dosage: 1 DOSAGE FORM, BID
     Route: 048
  5. POTASSIUM CHLORIDE [Concomitant]
     Active Substance: POTASSIUM CHLORIDE
     Indication: Product used for unknown indication
     Dosage: 1 DOSAGE FORM, QD (ER, EXTENDED RELEASE, EVERY DAY WITH FOOD)
     Route: 065
     Dates: start: 20210201
  6. ELIQUIS [Concomitant]
     Active Substance: APIXABAN
     Indication: Product used for unknown indication
     Dosage: 1 DOSAGE FORM, BID
     Route: 048
     Dates: start: 20211118
  7. TOPROL XL [Concomitant]
     Active Substance: METOPROLOL SUCCINATE
     Indication: Product used for unknown indication
     Dosage: 0.5 DOSAGE FORM, QD (EXTENDED RELEASE)
     Route: 048
     Dates: start: 20211213
  8. XANAX [Concomitant]
     Active Substance: ALPRAZOLAM
     Indication: Product used for unknown indication
     Dosage: 1 DOSAGE FORM, TID (CAUTION SEDATION)
     Route: 048
     Dates: start: 20220117, end: 20220610
  9. CELEXA [Concomitant]
     Active Substance: CITALOPRAM HYDROBROMIDE
     Indication: Product used for unknown indication
     Dosage: 1 DOSAGE FORM, QD
     Route: 048
     Dates: start: 20220215

REACTIONS (16)
  - Blood potassium decreased [Recovering/Resolving]
  - Blood magnesium decreased [Recovering/Resolving]
  - Limb discomfort [Recovering/Resolving]
  - Facial discomfort [Recovering/Resolving]
  - Dehydration [Recovering/Resolving]
  - Product use issue [Not Recovered/Not Resolved]
  - Ejection fraction decreased [Unknown]
  - Alcohol poisoning [Unknown]
  - Paraesthesia [Not Recovered/Not Resolved]
  - Aphasia [Unknown]
  - Anxiety [Unknown]
  - Left ventricular dysfunction [Unknown]
  - Dyspnoea exertional [Unknown]
  - Weight increased [Unknown]
  - Wrong technique in product usage process [Not Recovered/Not Resolved]
  - Prescribed underdose [Unknown]
